FAERS Safety Report 6330358-8 (Version None)
Quarter: 2009Q3

REPORT INFORMATION
  Report Type: 
  Country: None (occurrence: None)
  Receive Date: 20090827
  Receipt Date: 20071106
  Transmission Date: 20100115
  Serious: Yes (Hospitalization, Other)
  Sender: FDA-Public Use
  Company Number: US-ASTRAZENECA-2007UW06037

PATIENT
  Age: 16041 Day
  Sex: Male

DRUGS (10)
  1. SEROQUEL [Suspect]
     Indication: DEPRESSION
     Dosage: 25MG-100MG
     Route: 048
     Dates: start: 20020329
  2. SEROQUEL [Suspect]
     Route: 048
     Dates: start: 20030709, end: 20040301
  3. ZYPREXA [Concomitant]
  4. RISPERDAL [Concomitant]
     Dates: end: 20040101
  5. NORVASC [Concomitant]
     Dates: start: 20011118
  6. SERZONE [Concomitant]
     Dosage: 100MG-200MG
     Dates: start: 20011118
  7. TRAZODONE HCL [Concomitant]
     Dosage: 50MG-100MG
     Dates: start: 20021113
  8. LIPITOR [Concomitant]
     Dates: start: 20030721
  9. PRILOSEC [Concomitant]
     Dosage: 20MG-40MG
     Dates: start: 20011127
  10. WELLBUTRIN [Concomitant]
     Dates: start: 20020531

REACTIONS (4)
  - ALCOHOLIC PANCREATITIS [None]
  - MULTIPLE INJURIES [None]
  - PANCREATITIS ACUTE [None]
  - PRODUCT QUALITY ISSUE [None]
